FAERS Safety Report 12745206 (Version 3)
Quarter: 2017Q1

REPORT INFORMATION
  Report Type: Report from Study
  Country: DE (occurrence: DE)
  Receive Date: 20160915
  Receipt Date: 20170105
  Transmission Date: 20170428
  Serious: Yes (Hospitalization)
  Sender: FDA-Public Use
  Company Number: DE-ROCHE-1830285

PATIENT
  Sex: Female
  Weight: 44 kg

DRUGS (35)
  1. AVASTIN [Suspect]
     Active Substance: BEVACIZUMAB
     Route: 042
     Dates: start: 20161006
  2. ACICLOVIR [Concomitant]
     Active Substance: ACYCLOVIR
     Route: 042
     Dates: start: 20151005, end: 20151015
  3. LYRICA [Concomitant]
     Active Substance: PREGABALIN
     Route: 048
  4. LYRICA [Concomitant]
     Active Substance: PREGABALIN
     Route: 048
  5. AMITRIPTYLINE [Concomitant]
     Active Substance: AMITRIPTYLINE
     Route: 048
  6. SAROTEN [Concomitant]
     Active Substance: AMITRIPTYLINE
     Route: 048
  7. PACLITAXEL. [Concomitant]
     Active Substance: PACLITAXEL
     Indication: OVARIAN CANCER
     Route: 042
     Dates: start: 20150730, end: 20150910
  8. LYRICA [Concomitant]
     Active Substance: PREGABALIN
     Route: 048
     Dates: start: 20151015
  9. SIMVASTATIN. [Concomitant]
     Active Substance: SIMVASTATIN
     Indication: HYPERLIPIDAEMIA
     Route: 048
  10. DELIX PLUS [Concomitant]
     Active Substance: HYDROCHLOROTHIAZIDE\RAMIPRIL
     Indication: HYPERTENSION
     Route: 048
  11. ACICLOVIR [Concomitant]
     Active Substance: ACYCLOVIR
     Route: 048
     Dates: start: 20151016, end: 20151017
  12. LYRICA [Concomitant]
     Active Substance: PREGABALIN
     Route: 048
  13. MONO-EMBOLEX [Concomitant]
     Active Substance: CERTOPARIN SODIUM
     Indication: THROMBOSIS
     Route: 058
     Dates: start: 20151003, end: 20151015
  14. ASPIRIN. [Concomitant]
     Active Substance: ASPIRIN
     Indication: CORONARY ARTERY DISEASE
     Route: 048
  15. TOREM [Concomitant]
     Active Substance: TORSEMIDE
     Indication: HYPERTENSION
     Route: 048
  16. ACICLOVIR [Concomitant]
     Active Substance: ACYCLOVIR
     Indication: HERPES ZOSTER
     Route: 042
     Dates: start: 20151003, end: 20151004
  17. IBUPROFEN. [Concomitant]
     Active Substance: IBUPROFEN
     Indication: PAIN
     Route: 048
     Dates: start: 20151006
  18. LYRICA [Concomitant]
     Active Substance: PREGABALIN
     Route: 048
     Dates: start: 20151012, end: 20151014
  19. ISOPTOMAX [Concomitant]
     Indication: HERPES ZOSTER
     Route: 065
     Dates: start: 20151003, end: 20151015
  20. PANTOPRAZOL [Concomitant]
     Active Substance: PANTOPRAZOLE SODIUM
     Indication: GASTROINTESTINAL DISORDER
     Route: 048
  21. ESPUMISAN (GERMANY) [Concomitant]
     Indication: GASTROINTESTINAL DISORDER
     Route: 048
  22. NOVALGIN [Concomitant]
     Active Substance: METAMIZOLE SODIUM
     Indication: PAIN
     Route: 048
     Dates: start: 20151003, end: 20151006
  23. SIMVASTATIN. [Concomitant]
     Active Substance: SIMVASTATIN
     Indication: MYOCARDIAL INFARCTION
  24. PREDNISOLONE. [Concomitant]
     Active Substance: PREDNISOLONE
     Indication: HERPES ZOSTER
     Route: 048
     Dates: start: 20151005, end: 20151007
  25. AVASTIN [Suspect]
     Active Substance: BEVACIZUMAB
     Indication: OVARIAN CANCER
     Route: 042
     Dates: start: 20150820
  26. DELIX (GERMANY) [Concomitant]
     Indication: HYPERTENSION
     Route: 048
  27. LYRICA [Concomitant]
     Active Substance: PREGABALIN
     Indication: PAIN
     Route: 048
     Dates: start: 20151010, end: 20151011
  28. LAVANID [Concomitant]
     Indication: HERPES ZOSTER
     Route: 065
     Dates: start: 20151003, end: 20151015
  29. VERSATIS [Concomitant]
     Active Substance: LIDOCAINE
  30. CARBOPLATIN. [Concomitant]
     Active Substance: CARBOPLATIN
     Indication: OVARIAN CANCER
     Dosage: 264.85-286.7 MG
     Route: 042
     Dates: start: 20150730, end: 20150910
  31. AVASTIN [Suspect]
     Active Substance: BEVACIZUMAB
     Route: 042
     Dates: start: 20160825, end: 20160825
  32. PANTOPRAZOL [Concomitant]
     Active Substance: PANTOPRAZOLE SODIUM
     Route: 048
  33. ACICLOVIR [Concomitant]
     Active Substance: ACYCLOVIR
     Route: 048
     Dates: start: 20151015, end: 20151015
  34. ACICLOVIR [Concomitant]
     Active Substance: ACYCLOVIR
     Indication: HERPES ZOSTER
     Route: 065
     Dates: start: 20151003, end: 20151015
  35. CORNEREGEL [Concomitant]
     Active Substance: DEXPANTHENOL
     Indication: HERPES ZOSTER
     Route: 065
     Dates: start: 20151003, end: 20151015

REACTIONS (3)
  - Haematoma [Recovered/Resolved]
  - Fall [Unknown]
  - Hypertension [Recovering/Resolving]

NARRATIVE: CASE EVENT DATE: 20160825
